FAERS Safety Report 4576359-1 (Version None)
Quarter: 2005Q1

REPORT INFORMATION
  Report Type: 
  Country: None (occurrence: None)
  Receive Date: 20050207
  Receipt Date: 20050121
  Transmission Date: 20050727
  Serious: Yes (Hospitalization)
  Sender: FDA-Public Use
  Company Number: 9902

PATIENT
  Sex: Male

DRUGS (8)
  1. ETOPOSIDE [Suspect]
     Indication: MULTIPLE MYELOMA
     Dosage: 49 MG/M2
  2. METHYLPREDNISOLONE [Suspect]
     Indication: MULTIPLE MYELOMA
     Dosage: 500 MG
  3. CYTARABINE [Suspect]
     Indication: MULTIPLE MYELOMA
     Dosage: 2000 MG/M2
  4. CISPLATIN [Suspect]
     Indication: MULTIPLE MYELOMA
     Dosage: 25 MG/M2, IV
     Route: 042
  5. GRANULOCYTE COLONY STIMULATING FACTOR [Concomitant]
  6. GRANISETRON [Concomitant]
  7. RANITIDINE [Concomitant]
  8. PREDNISOLONE [Concomitant]

REACTIONS (1)
  - LARGE INTESTINE PERFORATION [None]
